FAERS Safety Report 8846479 (Version 1)
Quarter: 2012Q4

REPORT INFORMATION
  Report Type: 
  Country: US (occurrence: US)
  Receive Date: 20121017
  Receipt Date: 20121017
  Transmission Date: 20130627
  Serious: No
  Sender: FDA-Public Use
  Company Number: US-BAYER-2012-108411

PATIENT
  Age: 57 Year
  Sex: Male
  Weight: 90.7 kg

DRUGS (4)
  1. ALEVE CAPLET/TABLET,MIDOL EXTENDED RELIEF CAPLET [Suspect]
     Indication: PAIN IN EXTREMITY
     Dosage: TAB, Other Frequency
     Route: 048
     Dates: start: 2011
  2. HIGH BLOOD PRESSURE MEDICATION [Concomitant]
  3. DIABETE MEDICATION [Concomitant]
  4. HEART MEDICATION [Concomitant]

REACTIONS (1)
  - Pain in extremity [None]
